FAERS Safety Report 11257600 (Version 2)
Quarter: 2015Q3

REPORT INFORMATION
  Report Type: Spontaneous
  Country: JP (occurrence: JP)
  Receive Date: 20150710
  Receipt Date: 20150811
  Transmission Date: 20151125
  Serious: Yes (Hospitalization)
  Sender: FDA-Public Use
  Company Number: JP-ROCHE-1605483

PATIENT
  Age: 71 Year
  Sex: Male
  Weight: 65 kg

DRUGS (15)
  1. 5-FU [Concomitant]
     Active Substance: FLUOROURACIL
     Indication: COLON CANCER RECURRENT
     Route: 065
     Dates: start: 20140422, end: 20140715
  2. DECADRON [Concomitant]
     Active Substance: DEXAMETHASONE
     Indication: PROPHYLAXIS
     Route: 041
     Dates: start: 20140919, end: 20150512
  3. AVASTIN [Suspect]
     Active Substance: BEVACIZUMAB
     Indication: COLON CANCER RECURRENT
     Dosage: TREATMENT LINE: 4
     Route: 041
     Dates: start: 20140919, end: 20150512
  4. ISOVORIN [Concomitant]
     Active Substance: LEUCOVORIN CALCIUM
     Indication: COLON CANCER RECURRENT
     Route: 041
     Dates: start: 20140919, end: 20150512
  5. 5-FU [Concomitant]
     Active Substance: FLUOROURACIL
     Indication: COLON CANCER RECURRENT
     Route: 040
     Dates: start: 20150210, end: 20150224
  6. 5-FU [Concomitant]
     Active Substance: FLUOROURACIL
     Indication: COLON CANCER RECURRENT
     Route: 040
     Dates: start: 20150317, end: 20150512
  7. 5-FU [Concomitant]
     Active Substance: FLUOROURACIL
     Indication: COLON CANCER RECURRENT
     Route: 041
     Dates: start: 20150317, end: 20150512
  8. 5-FU [Concomitant]
     Active Substance: FLUOROURACIL
     Indication: COLON CANCER RECURRENT
     Route: 041
     Dates: start: 20140919, end: 20150113
  9. TOPOTECIN [Concomitant]
     Active Substance: IRINOTECAN HYDROCHLORIDE
     Indication: COLON CANCER RECURRENT
     Route: 041
     Dates: start: 20140919, end: 20150113
  10. TOPOTECIN [Concomitant]
     Active Substance: IRINOTECAN HYDROCHLORIDE
     Indication: COLON CANCER RECURRENT
  11. TOPOTECIN [Concomitant]
     Active Substance: IRINOTECAN HYDROCHLORIDE
     Indication: COLON CANCER RECURRENT
     Route: 041
     Dates: start: 20150210, end: 20150224
  12. 5-FU [Concomitant]
     Active Substance: FLUOROURACIL
     Indication: COLON CANCER RECURRENT
     Route: 041
     Dates: start: 20150210, end: 20150224
  13. TOPOTECIN [Concomitant]
     Active Substance: IRINOTECAN HYDROCHLORIDE
     Indication: COLON CANCER RECURRENT
     Route: 041
     Dates: start: 20150317, end: 20150512
  14. 5-FU [Concomitant]
     Active Substance: FLUOROURACIL
     Indication: COLON CANCER RECURRENT
     Route: 040
     Dates: start: 20140919, end: 20150113
  15. KYTRIL [Concomitant]
     Active Substance: GRANISETRON HYDROCHLORIDE
     Indication: PROPHYLAXIS
     Route: 041
     Dates: start: 20140919, end: 20150512

REACTIONS (2)
  - Retinal tear [Recovered/Resolved]
  - Vitreous haemorrhage [Recovering/Resolving]

NARRATIVE: CASE EVENT DATE: 20150518
